FAERS Safety Report 5603230-6 (Version None)
Quarter: 2008Q1

REPORT INFORMATION
  Report Type: 
  Country: None (occurrence: None)
  Receive Date: 20080125
  Receipt Date: 20080114
  Transmission Date: 20080703
  Serious: Yes (Other)
  Sender: FDA-Public Use
  Company Number: AU-PFIZER INC-2008004673

PATIENT
  Sex: Male

DRUGS (3)
  1. CHANTIX [Suspect]
  2. SOLIAN [Concomitant]
  3. GASTRO-STOP [Concomitant]

REACTIONS (1)
  - THROAT TIGHTNESS [None]
